FAERS Safety Report 7150347-3 (Version None)
Quarter: 2010Q4

REPORT INFORMATION
  Report Type: 
  Country: None (occurrence: None)
  Receive Date: 20101210
  Receipt Date: 20101210
  Transmission Date: 20110411
  Serious: Yes (Hospitalization)
  Sender: FDA-Public Use
  Company Number: CA-ABBOTT-10P-028-0648436-00

PATIENT
  Sex: Male
  Weight: 59.02 kg

DRUGS (4)
  1. HUMIRA [Suspect]
     Indication: CROHN'S DISEASE
     Dosage: 80 MG WEEKLY
     Route: 058
     Dates: start: 20080305, end: 20101110
  2. DURAGESIC-100 [Concomitant]
     Indication: PRODUCT USED FOR UNKNOWN INDICATION
     Dosage: PATCH
  3. ZANTAC [Concomitant]
     Indication: GASTRIC DISORDER
  4. FIORINAL PLAIN [Concomitant]
     Indication: PAIN
     Dosage: 1-2 TABLETS

REACTIONS (9)
  - ASTHENIA [None]
  - DIZZINESS [None]
  - EYE MOVEMENT DISORDER [None]
  - HEADACHE [None]
  - INSOMNIA [None]
  - MOVEMENT DISORDER [None]
  - NARCOLEPSY [None]
  - VERTIGO POSITIONAL [None]
  - VOMITING [None]
